FAERS Safety Report 15680525 (Version 1)
Quarter: 2018Q4

REPORT INFORMATION
  Report Type: Spontaneous
  Country: US (occurrence: US)
  Receive Date: 20181128
  Receipt Date: 20181128
  Transmission Date: 20190205
  Serious: Yes (Hospitalization, Other)
  Sender: FDA-Public Use
  Company Number: None

PATIENT
  Age: 35 Year
  Sex: Male
  Weight: 70 kg

DRUGS (1)
  1. KRATOM HERBAL SUPPLEMENT [Suspect]
     Active Substance: MITRAGYNINE\HERBALS
     Indication: SUBSTANCE USE

REACTIONS (2)
  - Liver function test increased [None]
  - Cholecystitis [None]
